FAERS Safety Report 14699975 (Version 1)
Quarter: 2018Q1

REPORT INFORMATION
  Report Type: Spontaneous
  Country: US (occurrence: US)
  Receive Date: 20180329
  Receipt Date: 20180329
  Transmission Date: 20180509
  Serious: Yes (Other)
  Sender: FDA-Public Use
  Company Number: None

PATIENT
  Age: 12 Year
  Sex: Female

DRUGS (1)
  1. HYOSYNE [Suspect]
     Active Substance: HYOSCYAMINE SULFATE
     Route: 048
     Dates: start: 20180329, end: 20180329

REACTIONS (2)
  - Throat irritation [None]
  - Headache [None]

NARRATIVE: CASE EVENT DATE: 20180329
